FAERS Safety Report 6439223-9 (Version None)
Quarter: 2009Q4

REPORT INFORMATION
  Report Type: 
  Country: None (occurrence: None)
  Receive Date: 20091113
  Receipt Date: 20091110
  Transmission Date: 20100525
  Serious: Yes (Death)
  Sender: FDA-Public Use
  Company Number: US-ASTRAZENECA-2009SE25660

PATIENT
  Age: 998 Month
  Sex: Male

DRUGS (2)
  1. SYMBICORT [Suspect]
     Indication: GASTROOESOPHAGEAL REFLUX DISEASE
     Route: 055
  2. PRILOSEC [Concomitant]

REACTIONS (2)
  - BLOOD DISORDER [None]
  - RENAL FAILURE [None]
